FAERS Safety Report 6974520-X (Version None)
Quarter: 2010Q3

REPORT INFORMATION
  Report Type: 
  Country: None (occurrence: None)
  Receive Date: 20100909
  Receipt Date: 20081216
  Transmission Date: 20110219
  Serious: Yes (Other)
  Sender: FDA-Public Use
  Company Number: US-WYE-H06261508

PATIENT
  Sex: Female
  Weight: 56.75 kg

DRUGS (4)
  1. PRISTIQ [Suspect]
     Indication: MAJOR DEPRESSION
     Route: 048
     Dates: start: 20080911, end: 20080913
  2. METOPROLOL TARTRATE [Concomitant]
  3. NAPROXEN [Concomitant]
  4. XANAX [Suspect]
     Indication: ANXIETY
     Route: 048

REACTIONS (1)
  - CONVULSION [None]
